FAERS Safety Report 8332852-7 (Version None)
Quarter: 2012Q2

REPORT INFORMATION
  Report Type: 
  Country: None (occurrence: None)
  Receive Date: 20120503
  Receipt Date: 20120430
  Transmission Date: 20120825
  Serious: Yes (Other)
  Sender: FDA-Public Use
  Company Number: US-AMGEN-USASP2011056298

PATIENT
  Age: 29 Year
  Sex: Female

DRUGS (5)
  1. FOLIC ACID [Concomitant]
     Dosage: UNK UNK, QD
     Route: 048
  2. PRENATAL                           /00231801/ [Concomitant]
     Dosage: UNK
  3. ENBREL [Suspect]
     Dosage: 25 MG, 2 TIMES/WK
     Dates: start: 20000601
  4. PREDNISONE [Concomitant]
     Dosage: 5 MG, QD
     Route: 048
  5. ENBREL [Suspect]
     Indication: RHEUMATOID ARTHRITIS
     Dosage: 25 MG, Q2WK
     Dates: start: 20031101

REACTIONS (8)
  - CHEST PAIN [None]
  - RHEUMATOID ARTHRITIS [None]
  - MATERNAL DRUGS AFFECTING FOETUS [None]
  - GESTATIONAL HYPERTENSION [None]
  - VOMITING [None]
  - INJECTION SITE PRURITUS [None]
  - INJECTION SITE SWELLING [None]
  - BLOOD PRESSURE INCREASED [None]
